FAERS Safety Report 19440670 (Version 1)
Quarter: 2021Q2

REPORT INFORMATION
  Report Type: Spontaneous
  Country: US (occurrence: US)
  Receive Date: 20210621
  Receipt Date: 20210621
  Transmission Date: 20210717
  Serious: Yes (Hospitalization)
  Sender: FDA-Public Use
  Company Number: US-STRIDES ARCOLAB LIMITED-2021SP004615

PATIENT
  Sex: Male

DRUGS (17)
  1. CLOBETASOL [Suspect]
     Active Substance: CLOBETASOL
     Indication: ECZEMA
     Dosage: UNK, 0.05% CLOBETASOL
     Route: 061
  2. HYDROCORTISONE. [Suspect]
     Active Substance: HYDROCORTISONE
     Dosage: UNK, ORAL
     Route: 048
  3. MOMETASONE [Suspect]
     Active Substance: MOMETASONE
     Dosage: UNK, TWICE DAILY
     Route: 061
  4. DESONIDE. [Suspect]
     Active Substance: DESONIDE
     Indication: ECZEMA
     Dosage: UNK, 0.05% DESONIDE CREAM OR OINTMENT
     Route: 061
  5. DESONIDE. [Suspect]
     Active Substance: DESONIDE
     Dosage: UNK,  USED OCCASIONALLY ALONG WITH TACROLIMUS OINTMENT.
     Route: 061
  6. HYDROCORTISONE. [Suspect]
     Active Substance: HYDROCORTISONE
     Indication: CUSHING^S SYNDROME
     Dosage: UNK, HYDROCORTISONE OINTMENTUNK
     Route: 065
  7. BETAMETHASONE VALERATE. [Suspect]
     Active Substance: BETAMETHASONE VALERATE
     Indication: ECZEMA
     Dosage: UNK, 0.1% BETAMETHASONE VALERATE LOTION
     Route: 061
  8. MOMETASONE [Suspect]
     Active Substance: MOMETASONE
     Indication: ECZEMA
     Dosage: UNK,
     Route: 061
  9. HYDROCORTISONE. [Suspect]
     Active Substance: HYDROCORTISONE
     Indication: ECZEMA
     Dosage: UNK, 1% HYDROCORTISONE LOTION AND CREAM
     Route: 061
  10. DESONIDE. [Suspect]
     Active Substance: DESONIDE
     Dosage: UNK
     Route: 061
  11. HYDROCORTISONE. [Suspect]
     Active Substance: HYDROCORTISONE
     Dosage: UNK,  USED OCCASIONALLY ALONG WITH TACROLIMUS OINTMENT.
     Route: 061
  12. CLOBETASOL [Suspect]
     Active Substance: CLOBETASOL
     Dosage: UNK, USED OCCASIONALLY ALONG WITH TACROLIMUS OINTMENT.
     Route: 061
  13. BETAMETHASONE DIPROPIONATE. [Suspect]
     Active Substance: BETAMETHASONE DIPROPIONATE
     Indication: ECZEMA
     Dosage: UNK, 0.05% BETAMETHASONE DIPROPIONATE CREAM
     Route: 061
  14. BETAMETHASONE VALERATE. [Suspect]
     Active Substance: BETAMETHASONE VALERATE
     Dosage: UNK,  USED OCCASIONALLY ALONG WITH TACROLIMUS OINTMENT.
     Route: 061
  15. BETAMETHASONE DIPROPIONATE. [Suspect]
     Active Substance: BETAMETHASONE DIPROPIONATE
     Dosage: UNK,  USED OCCASIONALLY ALONG WITH TACROLIMUS OINTMENT.
     Route: 061
  16. MOMETASONE [Suspect]
     Active Substance: MOMETASONE
     Dosage: UNK  USED OCCASIONALLY ALONG WITH TACROLIMUS OINTMENT.
     Route: 061
  17. CEPHALEXINE [Concomitant]
     Active Substance: CEPHALEXIN
     Indication: SUPERINFECTION
     Dosage: UNK
     Route: 065

REACTIONS (1)
  - Cushing^s syndrome [Recovered/Resolved]
